FAERS Safety Report 5836287-8 (Version None)
Quarter: 2008Q3

REPORT INFORMATION
  Report Type: 
  Country: None (occurrence: None)
  Receive Date: 20080801
  Receipt Date: 20080508
  Transmission Date: 20090109
  Serious: Yes (Other)
  Sender: FDA-Public Use
  Company Number: 171546USA

PATIENT

DRUGS (3)
  1. MITOXANTRONE HYDROCHLORIDE [Suspect]
  2. MITOXANTRONE HYDROCHLORIDE [Suspect]
  3. MITOXANTRONE HYDROCHLORIDE [Suspect]

REACTIONS (1)
  - CARDIOMYOPATHY [None]
